FAERS Safety Report 8072056-9 (Version None)
Quarter: 2011Q4

REPORT INFORMATION
  Report Type: 
  Country: None (occurrence: None)
  Receive Date: 20111221
  Receipt Date: 20110721
  Transmission Date: 20120403
  Serious: Yes (Hospitalization)
  Sender: FDA-Public Use
  Company Number: PHHY2011US66121

PATIENT
  Age: 23 Year
  Sex: Female
  Weight: 69.4 kg

DRUGS (1)
  1. EXJADE [Suspect]
     Indication: SICKLE CELL ANAEMIA
     Dosage: 250 MG, DAILY, ORAL
     Route: 048
     Dates: start: 20090419, end: 20110613

REACTIONS (1)
  - SICKLE CELL ANAEMIA WITH CRISIS [None]
